FAERS Safety Report 12900982 (Version 1)
Quarter: 2016Q4

REPORT INFORMATION
  Report Type: Report from Study
  Country: ES (occurrence: ES)
  Receive Date: 20161101
  Receipt Date: 20161101
  Transmission Date: 20170207
  Serious: Yes (Other)
  Sender: FDA-Public Use
  Company Number: ES-SA-2016SA198245

PATIENT
  Age: 80 Year
  Sex: Female

DRUGS (3)
  1. AMERIDE (AMILORIDE HYDROCHLORIDE\HYDROCHLOROTHIAZIDE) [Interacting]
     Active Substance: AMILORIDE HYDROCHLORIDE\HYDROCHLOROTHIAZIDE
     Indication: HYPERTENSIVE HEART DISEASE
     Route: 048
     Dates: start: 2016, end: 20160715
  2. CLEXANE [Suspect]
     Active Substance: ENOXAPARIN SODIUM
     Route: 051
     Dates: start: 2016
  3. RAMIPRIL. [Interacting]
     Active Substance: RAMIPRIL
     Indication: HYPERTENSIVE HEART DISEASE
     Dosage: 1-0-1
     Route: 048
     Dates: start: 2016, end: 20160715

REACTIONS (2)
  - Hyponatraemia [Recovering/Resolving]
  - Hyperkalaemia [Recovering/Resolving]

NARRATIVE: CASE EVENT DATE: 201607
